FAERS Safety Report 15785528 (Version 1)
Quarter: 2019Q1

REPORT INFORMATION
  Report Type: Spontaneous
  Country: US (occurrence: US)
  Receive Date: 20190101
  Receipt Date: 20190101
  Transmission Date: 20190417
  Serious: Yes (Disabling, Other)
  Sender: FDA-Public Use
  Company Number: None

PATIENT
  Age: 65 Year
  Sex: Female
  Weight: 73.35 kg

DRUGS (13)
  1. B1 [Concomitant]
  2. BOTOX [Suspect]
     Active Substance: ONABOTULINUMTOXINA
     Indication: HEADACHE
     Dosage: ?          OTHER FREQUENCY:EVERY THREE MONTHS;OTHER ROUTE:42 INJECTIONS TO HEAD?
     Dates: start: 20180417, end: 20180717
  3. SYNTHROID [Concomitant]
     Active Substance: LEVOTHYROXINE SODIUM
  4. CLOPIDOGREL [Concomitant]
     Active Substance: CLOPIDOGREL BISULFATE
  5. ASCORBIC ACID. [Concomitant]
     Active Substance: ASCORBIC ACID
  6. VITAMIN D3 [Concomitant]
     Active Substance: CHOLECALCIFEROL
  7. DULOXETINE. [Concomitant]
     Active Substance: DULOXETINE
  8. VITAMIN B12 [Concomitant]
     Active Substance: CYANOCOBALAMIN
  9. FOLIC ACID. [Concomitant]
     Active Substance: FOLIC ACID
  10. ROSUVASTATIN. [Concomitant]
     Active Substance: ROSUVASTATIN
  11. BIOTIN [Concomitant]
     Active Substance: BIOTIN
  12. MELATONIN [Concomitant]
     Active Substance: MELATONIN
  13. ASPIRIN 81MG [Concomitant]
     Active Substance: ASPIRIN

REACTIONS (2)
  - Headache [None]
  - Blindness [None]

NARRATIVE: CASE EVENT DATE: 20180717
